FAERS Safety Report 13489816 (Version 1)
Quarter: 2017Q2

REPORT INFORMATION
  Report Type: Spontaneous
  Country: HU (occurrence: HU)
  Receive Date: 20170426
  Receipt Date: 20170426
  Transmission Date: 20170830
  Serious: Yes (Other)
  Sender: FDA-Public Use
  Company Number: HU-IMPAX LABORATORIES, INC-2017-IPXL-01041

PATIENT
  Sex: Female

DRUGS (4)
  1. INSULIN [Suspect]
     Active Substance: INSULIN NOS
     Indication: TYPE 2 DIABETES MELLITUS
     Dosage: UNK
     Route: 065
  2. FOLIC ACID. [Suspect]
     Active Substance: FOLIC ACID
     Indication: SUPPLEMENTATION THERAPY
     Dosage: UNK
     Route: 065
  3. METFORMIN HYDROCHLORIDE ER [Suspect]
     Active Substance: METFORMIN HYDROCHLORIDE
     Indication: TYPE 2 DIABETES MELLITUS
     Dosage: UNK
     Route: 065
  4. MYO-INOSITOL [Suspect]
     Active Substance: INOSITOL
     Indication: HYPOGLYCAEMIA
     Dosage: UNK
     Route: 065

REACTIONS (6)
  - Premature rupture of membranes [Unknown]
  - Exposure during pregnancy [Unknown]
  - Abortion induced [Unknown]
  - Hypoglycaemia [Recovering/Resolving]
  - Premature baby [Unknown]
  - Diabetes mellitus inadequate control [Unknown]
